FAERS Safety Report 26079718 (Version 1)
Quarter: 2025Q4

REPORT INFORMATION
  Report Type: Report from Study
  Country: US (occurrence: US)
  Receive Date: 20251123
  Receipt Date: 20251123
  Transmission Date: 20260117
  Serious: Yes (Hospitalization)
  Sender: ABBVIE
  Company Number: US-ABBVIE-6557346

PATIENT
  Age: 25 Year
  Sex: Female

DRUGS (1)
  1. RINVOQ [Suspect]
     Active Substance: UPADACITINIB
     Indication: Colitis ulcerative
     Route: 048
     Dates: start: 20250225, end: 202511

REACTIONS (5)
  - Vomiting [Unknown]
  - Dyspnoea [Unknown]
  - Haematochezia [Unknown]
  - Gastrointestinal inflammation [Unknown]
  - Dehydration [Unknown]

NARRATIVE: CASE EVENT DATE: 20251115
